FAERS Safety Report 7319135-9 (Version None)
Quarter: 2011Q1

REPORT INFORMATION
  Report Type: 
  Country: None (occurrence: None)
  Receive Date: 20110228
  Receipt Date: 20110201
  Transmission Date: 20110831
  Serious: No
  Sender: FDA-Public Use
  Company Number: US-B.I. PHARMACEUTICALS,INC./RIDGEFIELD-2011-BP-03217BP

PATIENT
  Sex: Female

DRUGS (4)
  1. PRADAXA [Suspect]
     Indication: ATRIAL FIBRILLATION
     Dosage: 300 MG
     Route: 048
     Dates: start: 20110101, end: 20110130
  2. AVAPRO [Concomitant]
     Indication: HYPERTENSION
  3. ASMANEX TWISTHALER [Concomitant]
     Indication: ASTHMA
  4. ATENOLOL [Concomitant]
     Indication: HYPERTENSION

REACTIONS (2)
  - FLUSHING [None]
  - SWELLING FACE [None]
